FAERS Safety Report 14350273 (Version 1)
Quarter: 2018Q1

REPORT INFORMATION
  Report Type: Spontaneous
  Country: GB (occurrence: GB)
  Receive Date: 20180103
  Receipt Date: 20180103
  Transmission Date: 20180509
  Serious: Yes (Disabling)
  Sender: FDA-Public Use
  Company Number: None

PATIENT
  Age: 55 Year
  Sex: Female
  Weight: 59.42 kg

DRUGS (3)
  1. BETNOVATE [Suspect]
     Active Substance: BETAMETHASONE
     Indication: ECZEMA
     Route: 058
  2. ANTIHISTAMINE [Concomitant]
     Active Substance: ANTIHISTAMINES NOS
  3. ELOCON [Suspect]
     Active Substance: MOMETASONE FUROATE
     Indication: ECZEMA

REACTIONS (3)
  - Alopecia [None]
  - Steroid withdrawal syndrome [None]
  - Skin atrophy [None]

NARRATIVE: CASE EVENT DATE: 20160606
